FAERS Safety Report 10144001 (Version 1)
Quarter: 2014Q2

REPORT INFORMATION
  Report Type: Spontaneous
  Country: US (occurrence: US)
  Receive Date: 20140430
  Receipt Date: 20140430
  Transmission Date: 20141212
  Serious: Yes (Other)
  Sender: FDA-Public Use
  Company Number: US-BRISTOL-MYERS SQUIBB COMPANY-20650396

PATIENT
  Age: 64 Year
  Sex: 0

DRUGS (1)
  1. BARACLUDE [Suspect]
     Dates: start: 201202

REACTIONS (2)
  - Liver disorder [Unknown]
  - Drug dose omission [Unknown]
